FAERS Safety Report 6072765-7 (Version None)
Quarter: 2009Q1

REPORT INFORMATION
  Report Type: 
  Country: None (occurrence: None)
  Receive Date: 20090210
  Receipt Date: 20090130
  Transmission Date: 20090719
  Serious: Yes (Other)
  Sender: FDA-Public Use
  Company Number: AU-ELI_LILLY_AND_COMPANY-AU200812000754

PATIENT
  Sex: Female

DRUGS (3)
  1. CYMBALTA [Suspect]
     Indication: DEPRESSION
     Dosage: 30 MG, UNKNOWN
     Route: 065
     Dates: start: 20081013, end: 20081015
  2. MS CONTIN [Concomitant]
     Indication: RHEUMATOID ARTHRITIS
  3. INFLIXIMAB [Concomitant]
     Indication: RHEUMATOID ARTHRITIS

REACTIONS (2)
  - PRURITUS [None]
  - RASH [None]
